FAERS Safety Report 8328470-7 (Version None)
Quarter: 2012Q2

REPORT INFORMATION
  Report Type: 
  Country: None (occurrence: None)
  Receive Date: 20120502
  Receipt Date: 20120502
  Transmission Date: 20120825
  Serious: Yes (Other)
  Sender: FDA-Public Use
  Company Number: None

PATIENT
  Sex: Female

DRUGS (2)
  1. CALDOLOR [Suspect]
     Indication: PAIN
     Dosage: |DOSAGETEXT: 800 MG||STRENGTH: 800 MG / 8 ML||FREQ: ONCE||ROUTE: INTRAVENOUS DRIP|
     Route: 041
     Dates: start: 20120409, end: 20120409
  2. CALDOLOR [Suspect]
     Indication: NEPHROLITHIASIS
     Dosage: |DOSAGETEXT: 800 MG||STRENGTH: 800 MG / 8 ML||FREQ: ONCE||ROUTE: INTRAVENOUS DRIP|
     Route: 041
     Dates: start: 20120409, end: 20120409

REACTIONS (3)
  - THROAT IRRITATION [None]
  - TONGUE DISORDER [None]
  - INFUSION RELATED REACTION [None]
